FAERS Safety Report 7917877-5 (Version None)
Quarter: 2011Q4

REPORT INFORMATION
  Report Type: 
  Country: None (occurrence: None)
  Receive Date: 20111114
  Receipt Date: 20111028
  Transmission Date: 20120403
  Serious: Yes (Other)
  Sender: FDA-Public Use
  Company Number: 2011MA016147

PATIENT
  Age: 52 Year
  Sex: Male

DRUGS (1)
  1. GEMCITABINE HYDROCHLORIDE [Suspect]
     Indication: LYMPHOMA CUTIS

REACTIONS (6)
  - CELLULITIS [None]
  - ULCER [None]
  - FUNGAL SKIN INFECTION [None]
  - PLAGUE [None]
  - RADIATION SKIN INJURY [None]
  - ALTERNARIA INFECTION [None]
